FAERS Safety Report 8843743 (Version 1)
Quarter: 2012Q4

REPORT INFORMATION
  Report Type: 
  Country: DE (occurrence: DE)
  Receive Date: 20121017
  Receipt Date: 20121017
  Transmission Date: 20130627
  Serious: Yes (Hospitalization)
  Sender: FDA-Public Use
  Company Number: DE-AMGEN-DEUSP2012065739

PATIENT
  Age: 75 Year
  Sex: Female

DRUGS (2)
  1. ENBREL [Suspect]
     Indication: RHEUMATOID ARTHRITIS
     Dosage: 25 mg, weekly
     Dates: start: 20080801
  2. ENBREL [Suspect]
     Indication: POLYARTHRITIS
     Dosage: UNK

REACTIONS (2)
  - Back disorder [Not Recovered/Not Resolved]
  - Infection [Not Recovered/Not Resolved]
